FAERS Safety Report 9924950 (Version 2)
Quarter: 2014Q1

REPORT INFORMATION
  Report Type: Spontaneous
  Country: IL (occurrence: IL)
  Receive Date: 20140226
  Receipt Date: 20140310
  Transmission Date: 20141002
  Serious: Yes (Hospitalization, Other)
  Sender: FDA-Public Use
  Company Number: IL-JNJFOC-20140215654

PATIENT
  Age: 61 Year
  Sex: Male

DRUGS (7)
  1. XARELTO [Suspect]
     Indication: CEREBROVASCULAR ACCIDENT PROPHYLAXIS
     Route: 048
     Dates: start: 2012
  2. XARELTO [Suspect]
     Indication: ATRIAL FIBRILLATION
     Route: 048
     Dates: start: 2012
  3. CARDILOC [Concomitant]
     Route: 065
  4. FUSID [Concomitant]
     Route: 065
  5. ALLORIL [Concomitant]
     Route: 065
  6. LIPITOR [Concomitant]
     Route: 065
  7. FOLIC ACID [Concomitant]
     Route: 065

REACTIONS (7)
  - Transient ischaemic attack [Recovered/Resolved]
  - Sensory disturbance [Recovered/Resolved]
  - Motor dysfunction [Recovered/Resolved]
  - Confusional state [Recovered/Resolved]
  - Cerebral infarction [Unknown]
  - Cerebral infarction [Unknown]
  - Drug ineffective [Unknown]
